FAERS Safety Report 15158024 (Version 1)
Quarter: 2018Q3

REPORT INFORMATION
  Report Type: Spontaneous
  Country: US (occurrence: US)
  Receive Date: 20180718
  Receipt Date: 20180718
  Transmission Date: 20181010
  Serious: No
  Sender: FDA-Public Use
  Company Number: US-ALLERGAN-1835081US

PATIENT
  Sex: Male

DRUGS (2)
  1. TRIPTORELIN PAMOATE ? BP [Suspect]
     Active Substance: TRIPTORELIN PAMOATE
     Indication: PRODUCT USED FOR UNKNOWN INDICATION
     Dosage: UNK, SINGLE
     Route: 030
  2. TRIPTORELIN PAMOATE ? BP [Suspect]
     Active Substance: TRIPTORELIN PAMOATE
     Dosage: UNK, SINGLE
     Route: 030

REACTIONS (8)
  - Liquid product physical issue [Unknown]
  - Wrong technique in device usage process [Unknown]
  - Product colour issue [Unknown]
  - Injection site discomfort [Unknown]
  - Product use complaint [Unknown]
  - Incorrect dose administered [Unknown]
  - Product reconstitution quality issue [Unknown]
  - Product physical issue [Unknown]
